FAERS Safety Report 5302191-7 (Version None)
Quarter: 2007Q1

REPORT INFORMATION
  Report Type: 
  Country: None (occurrence: None)
  Receive Date: 20070201
  Receipt Date: 20061214
  Transmission Date: 20070707
  Serious: No
  Sender: FDA-Public Use
  Company Number: 2006PV026975

PATIENT
  Age: 48 Year
  Sex: Female

DRUGS (3)
  1. BYETTA [Suspect]
     Indication: DRUG USE FOR UNKNOWN INDICATION
     Dosage: 5 MCG; BID; SC
     Route: 058
     Dates: start: 20061203
  2. NOVOLOG [Concomitant]
  3. LEVEMIR [Concomitant]

REACTIONS (2)
  - CHANGE OF BOWEL HABIT [None]
  - DECREASED APPETITE [None]
